FAERS Safety Report 19739308 (Version 4)
Quarter: 2021Q4

REPORT INFORMATION
  Report Type: Report from Study
  Country: US (occurrence: US)
  Receive Date: 20210823
  Receipt Date: 20211026
  Transmission Date: 20220303
  Serious: Yes (Hospitalization, Other)
  Sender: FDA-Public Use
  Company Number: US-TAKEDA-2021TUS052462

PATIENT
  Age: 65 Year
  Sex: Male

DRUGS (17)
  1. TEDUGLUTIDE [Suspect]
     Active Substance: TEDUGLUTIDE
     Indication: Short-bowel syndrome
     Dosage: 0.328 MILLIGRAM, QD
     Route: 058
     Dates: start: 20201230, end: 20211011
  2. TEDUGLUTIDE [Suspect]
     Active Substance: TEDUGLUTIDE
     Indication: Short-bowel syndrome
     Dosage: 0.328 MILLIGRAM, QD
     Route: 058
     Dates: start: 20201230, end: 20211011
  3. TEDUGLUTIDE [Suspect]
     Active Substance: TEDUGLUTIDE
     Indication: Short-bowel syndrome
     Dosage: 0.328 MILLIGRAM, QD
     Route: 058
     Dates: start: 20201230, end: 20211011
  4. TEDUGLUTIDE [Suspect]
     Active Substance: TEDUGLUTIDE
     Indication: Short-bowel syndrome
     Dosage: 0.328 MILLIGRAM, QD
     Route: 058
     Dates: start: 20201230, end: 20211011
  5. TEMAZEPAM [Concomitant]
     Active Substance: TEMAZEPAM
  6. RIFAMPIN [Concomitant]
     Active Substance: RIFAMPIN
  7. ARIKAYCE [Concomitant]
     Active Substance: AMIKACIN
  8. TPN [Concomitant]
     Active Substance: AMINO ACIDS\DEXTROSE\ELECTROLYTES NOS\SOYBEAN OIL
  9. OXYCODONE HYDROCHLORIDE [Concomitant]
     Active Substance: OXYCODONE HYDROCHLORIDE
  10. OPIUM TINCTURE [Concomitant]
     Active Substance: MORPHINE
  11. VITAMIN D [Concomitant]
     Active Substance: VITAMIN D NOS
  12. OCTREOTIDE ACETATE [Concomitant]
     Active Substance: OCTREOTIDE ACETATE
  13. CYANOCOBALAMIN [Concomitant]
     Active Substance: CYANOCOBALAMIN
  14. ALBUTEROL SULFATE [Concomitant]
     Active Substance: ALBUTEROL SULFATE
  15. SODIUM CHLORIDE [Concomitant]
     Active Substance: SODIUM CHLORIDE
  16. ETHAMBUTOL HYDROCHLORIDE [Concomitant]
     Active Substance: ETHAMBUTOL HYDROCHLORIDE
  17. AZITHROMYCIN ANHYDROUS [Concomitant]
     Active Substance: AZITHROMYCIN ANHYDROUS

REACTIONS (4)
  - Pneumonia [Recovering/Resolving]
  - General physical health deterioration [Unknown]
  - Arthritis infective [Unknown]
  - Diarrhoea [Unknown]

NARRATIVE: CASE EVENT DATE: 20210816
